FAERS Safety Report 5262367-4 (Version None)
Quarter: 2007Q1

REPORT INFORMATION
  Report Type: 
  Country: None (occurrence: None)
  Receive Date: 20070308
  Receipt Date: 20070222
  Transmission Date: 20070707
  Serious: Yes (Death, Hospitalization, Other)
  Sender: FDA-Public Use
  Company Number: 15701

PATIENT
  Age: 44 Year
  Sex: Male

DRUGS (2)
  1. AMIODARONE HCL [Suspect]
     Indication: CONGESTIVE CARDIOMYOPATHY
     Dosage: 400 MG QD
     Dates: start: 19990801
  2. AMIODARONE HCL [Suspect]
     Indication: CONGESTIVE CARDIOMYOPATHY
     Dosage: 200 MG QD
     Dates: start: 19990101, end: 20040101

REACTIONS (10)
  - BLOOD PH INCREASED [None]
  - BODY MASS INDEX INCREASED [None]
  - CARDIAC FAILURE [None]
  - CHOLESTASIS [None]
  - HYPOTHYROIDISM [None]
  - INTERSTITIAL LUNG DISEASE [None]
  - MYOCARDIAL FIBROSIS [None]
  - NO THERAPEUTIC RESPONSE [None]
  - PULMONARY FIBROSIS [None]
  - PULMONARY TOXICITY [None]
